FAERS Safety Report 8055219-8 (Version None)
Quarter: 2011Q4

REPORT INFORMATION
  Report Type: 
  Country: None (occurrence: None)
  Receive Date: 20111219
  Receipt Date: 20101203
  Transmission Date: 20120403
  Serious: Yes (Other)
  Sender: FDA-Public Use
  Company Number: WAES 1012USA01119

PATIENT
  Sex: Female

DRUGS (2)
  1. JANUVIA [Suspect]
     Indication: DIABETES MELLITUS
     Dosage: /PO  TYE 2  MELLITUS
     Route: 048
  2. FENOFIBRATE [Concomitant]

REACTIONS (1)
  - PANCREATITIS [None]
